FAERS Safety Report 7727652-2 (Version None)
Quarter: 2011Q3

REPORT INFORMATION
  Report Type: 
  Country: None (occurrence: None)
  Receive Date: 20110902
  Receipt Date: 20110901
  Transmission Date: 20111222
  Serious: Yes (Life-Threatening)
  Sender: FDA-Public Use
  Company Number: FR-PFIZER INC-2011173096

PATIENT
  Age: 55 Year
  Sex: Male

DRUGS (8)
  1. ERBITUX [Suspect]
     Indication: CHEMOTHERAPY
     Dosage: 400 MG, UNK
     Route: 042
     Dates: start: 20110607, end: 20110607
  2. ASPIRIN [Concomitant]
     Dosage: 160 MG, UNK
     Route: 048
  3. PREDNISOLONE [Concomitant]
     Dosage: 20 MG, 3X/DAY
     Route: 048
     Dates: end: 20110607
  4. LEVOFLOXACIN [Concomitant]
     Dosage: 500 MG, UNK
     Route: 048
     Dates: end: 20110607
  5. ACETAMINOPHEN [Concomitant]
     Route: 048
  6. ATARAX [Suspect]
     Indication: PREMEDICATION
     Dosage: 50 MG, 2 INTAKES
     Route: 048
     Dates: start: 20110607, end: 20110607
  7. SOLU-MEDROL [Suspect]
     Indication: PREMEDICATION
     Dosage: 60 MG, 2 INTAKES
     Route: 048
     Dates: start: 20110607, end: 20110607
  8. DURAGESIC-100 [Concomitant]
     Dosage: 37 UG, UNK
     Route: 061

REACTIONS (1)
  - ANAPHYLACTIC SHOCK [None]
